FAERS Safety Report 9588284 (Version 1)
Quarter: 2013Q4

REPORT INFORMATION
  Report Type: Spontaneous
  Country: US (occurrence: US)
  Receive Date: 20131003
  Receipt Date: 20131003
  Transmission Date: 20140711
  Serious: No
  Sender: FDA-Public Use
  Company Number: US-AMGEN-USASP2012063334

PATIENT
  Sex: Male
  Weight: 102.4 kg

DRUGS (4)
  1. ENBREL [Suspect]
     Indication: PRODUCT USED FOR UNKNOWN INDICATION
     Dosage: 50 MG, QWK
     Route: 058
  2. FLOMAX                             /00889901/ [Concomitant]
     Dosage: 0.4 MG, UNK
  3. FOLIC ACID [Concomitant]
     Dosage: UNK
  4. CRESTOR [Concomitant]
     Dosage: 10 MG, UNK

REACTIONS (1)
  - Injection site pain [Unknown]
